FAERS Safety Report 7283891-9 (Version None)
Quarter: 2011Q1

REPORT INFORMATION
  Report Type: 
  Country: None (occurrence: None)
  Receive Date: 20110126
  Receipt Date: 20101231
  Transmission Date: 20110831
  Serious: Yes (Death)
  Sender: FDA-Public Use
  Company Number: AUR-APL-2011-00086

PATIENT
  Age: 48 Year
  Sex: Male

DRUGS (5)
  1. ACE INHIBITOR (NOS) [Suspect]
     Dosage: ORAL
     Route: 048
  2. AMLODIPINE BESYLATE AND ATORVASTATIN CALCIUM [Suspect]
     Dosage: ORAL
     Route: 048
  3. BETA BLOCKING AGENTS [Suspect]
     Dosage: ORAL
     Route: 048
  4. HYDROCHLOROTHIAZIDE [Suspect]
     Dosage: ORAL
     Route: 048
  5. SIMVASTATIN [Suspect]
     Dosage: ORAL
     Route: 048

REACTIONS (2)
  - TOXICITY TO VARIOUS AGENTS [None]
  - COMPLETED SUICIDE [None]
